FAERS Safety Report 5076506-1 (Version None)
Quarter: 2006Q3

REPORT INFORMATION
  Report Type: 
  Country: None (occurrence: None)
  Receive Date: 20060807
  Receipt Date: 20060724
  Transmission Date: 20061208
  Serious: Yes (Other)
  Sender: FDA-Public Use
  Company Number: 2006091130

PATIENT
  Age: 30 Year
  Sex: Male

DRUGS (3)
  1. ADRIBLASTIN SOLUTION    (DOXORUBICIN HYDROCHLORIDE) [Suspect]
     Indication: ACUTE LYMPHOCYTIC LEUKAEMIA
  2. VINCRISTINE [Suspect]
     Indication: ACUTE LYMPHOCYTIC LEUKAEMIA
     Dosage: 1.4 MG/M2 (1.4 MG/M2) INTRAVENOUS
     Route: 042
     Dates: end: 20060701
  3. METHOTREXATE [Concomitant]

REACTIONS (3)
  - CRANIAL NEUROPATHY [None]
  - IIIRD NERVE DISORDER [None]
  - STRABISMUS [None]
